FAERS Safety Report 6539368-9 (Version None)
Quarter: 2010Q1

REPORT INFORMATION
  Report Type: 
  Country: None (occurrence: None)
  Receive Date: 20100115
  Receipt Date: 20100104
  Transmission Date: 20100710
  Serious: Yes (Death)
  Sender: FDA-Public Use
  Company Number: US-PFIZER INC-2010000951

PATIENT
  Age: 47 Year
  Sex: Female

DRUGS (3)
  1. PREGABALIN [Suspect]
  2. MORPHINE [Suspect]
  3. MEPROBAMATE [Suspect]

REACTIONS (3)
  - CARDIAC ARREST [None]
  - DEATH [None]
  - RESPIRATORY ARREST [None]
